FAERS Safety Report 15439848 (Version 1)
Quarter: 2018Q3

REPORT INFORMATION
  Report Type: Spontaneous
  Country: US (occurrence: US)
  Receive Date: 20180924
  Receipt Date: 20180924
  Transmission Date: 20181010
  Serious: No
  Sender: FDA-Public Use
  Company Number: None

PATIENT
  Sex: Female

DRUGS (1)
  1. COPAXONE [Suspect]
     Active Substance: GLATIRAMER ACETATE
     Indication: MULTIPLE SCLEROSIS
     Dates: start: 201711, end: 20180921

REACTIONS (4)
  - Injection site pain [None]
  - Injection site pruritus [None]
  - Drug tolerance decreased [None]
  - Injection site reaction [None]

NARRATIVE: CASE EVENT DATE: 20180921
